FAERS Safety Report 9300201 (Version 2)
Quarter: 2013Q2

REPORT INFORMATION
  Report Type: Spontaneous
  Country: BR (occurrence: BR)
  Receive Date: 20130521
  Receipt Date: 20130603
  Transmission Date: 20140414
  Serious: Yes (Other)
  Sender: FDA-Public Use
  Company Number: PHHY2013BR049835

PATIENT
  Age: 66 Year
  Sex: Female

DRUGS (5)
  1. DIOVAN AMLO FIX [Suspect]
     Indication: HYPERTENSION
     Dosage: 1 DF (320 MG VALS AND 5 MG AMLO), DAILY
     Route: 048
     Dates: start: 2011
  2. DIOVAN [Suspect]
     Indication: HYPERTENSION
     Dosage: 320 MG, DAILY
     Route: 048
  3. DIOVAN HCT [Suspect]
     Indication: HYPERTENSION
     Dosage: 1 DF (320 MG VALS AND 12.5 MG HCTZ), DAILY
     Route: 048
  4. HIGROTON [Suspect]
     Indication: HYPERTENSION
     Dosage: 25 MG, DAILY
     Route: 048
  5. ALDACTONE [Suspect]
     Indication: HYPERTENSION
     Dosage: 25 MG, UNK
     Route: 048

REACTIONS (5)
  - Generalised oedema [Recovering/Resolving]
  - Local swelling [Recovering/Resolving]
  - Poor quality sleep [Recovering/Resolving]
  - Oliguria [Recovering/Resolving]
  - Drug ineffective [Unknown]
